FAERS Safety Report 4864807-9 (Version None)
Quarter: 2005Q4

REPORT INFORMATION
  Report Type: 
  Country: None (occurrence: None)
  Receive Date: 20051222
  Receipt Date: 20051005
  Transmission Date: 20060501
  Serious: Yes (Death)
  Sender: FDA-Public Use
  Company Number: US-MERCK-0510USA05585

PATIENT
  Age: 82 Year
  Sex: Female
  Weight: 75 kg

DRUGS (8)
  1. VIOXX [Suspect]
     Route: 048
     Dates: start: 20040801, end: 20040901
  2. ASPIRIN [Concomitant]
     Route: 065
  3. ZETIA [Concomitant]
     Route: 048
  4. LABETALOL HYDROCHLORIDE [Concomitant]
     Route: 065
  5. PREVACID [Concomitant]
     Route: 065
  6. VASOTEC [Concomitant]
     Route: 048
  7. ABILIFY [Concomitant]
     Route: 065
  8. GONADOTROPIN, CHORIONIC [Concomitant]
     Route: 065

REACTIONS (11)
  - ABDOMINAL PAIN [None]
  - ARRHYTHMIA [None]
  - ASTHENIA [None]
  - CARDIOVASCULAR DISORDER [None]
  - DYSPNOEA [None]
  - HYPERTENSION [None]
  - LUNG DISORDER [None]
  - NEPHROLITHIASIS [None]
  - PNEUMONIA [None]
  - PULMONARY OEDEMA [None]
  - RESPIRATORY ARREST [None]
